FAERS Safety Report 10700481 (Version 1)
Quarter: 2015Q1

REPORT INFORMATION
  Report Type: Spontaneous
  Country: ES (occurrence: None)
  Receive Date: 20150107
  Receipt Date: 20150107
  Transmission Date: 20150721
  Serious: Yes (Hospitalization, Other)
  Sender: FDA-Public Use
  Company Number: ES-ZYDUS-006277

PATIENT
  Age: 65 Year
  Sex: Male

DRUGS (1)
  1. AZATHIOPRINE (AZATHIOPRINE) [Suspect]
     Active Substance: AZATHIOPRINE
     Indication: CROHN^S DISEASE

REACTIONS (5)
  - Drug reaction with eosinophilia and systemic symptoms [None]
  - Hidradenitis [None]
  - Tachycardia [None]
  - Pancreatitis acute [None]
  - Hypotension [None]
